FAERS Safety Report 11509551 (Version 1)
Quarter: 2015Q3

REPORT INFORMATION
  Report Type: Spontaneous
  Country: US (occurrence: US)
  Receive Date: 20150915
  Receipt Date: 20150915
  Transmission Date: 20151125
  Serious: No
  Sender: FDA-Public Use
  Company Number: US-JNJFOC-20150513859

PATIENT
  Age: 87 Year
  Sex: Female
  Weight: 45.36 kg

DRUGS (3)
  1. TYLENOL REGULAR STRENGTH [Suspect]
     Active Substance: ACETAMINOPHEN
     Indication: PAIN
     Dosage: MAXIMUM OF 6 TOTAL TABLETS IN 24 HOURS, 1 TO 2 DOSES EVERY 4 TO 5 HOURS
     Route: 048
     Dates: start: 20150516, end: 20150519
  2. PROBIOTICS [Concomitant]
     Active Substance: PROBIOTICS NOS
     Indication: CONSTIPATION
     Route: 065
  3. METOPROLOL [Concomitant]
     Active Substance: METOPROLOL
     Indication: HYPERTENSION
     Dosage: PAST 5 TO 6 YEARS
     Route: 065

REACTIONS (3)
  - Constipation [Not Recovered/Not Resolved]
  - Product label issue [Unknown]
  - Drug ineffective [Unknown]

NARRATIVE: CASE EVENT DATE: 20150517
